FAERS Safety Report 25420841 (Version 7)
Quarter: 2025Q3

REPORT INFORMATION
  Report Type: Spontaneous
  Country: US (occurrence: US)
  Receive Date: 20250611
  Receipt Date: 20250730
  Transmission Date: 20251020
  Serious: Yes (Other)
  Sender: CHIESI
  Company Number: US-CHIESI-2025CHF03002

PATIENT
  Sex: Female
  Weight: 84.368 kg

DRUGS (7)
  1. JUXTAPID [Suspect]
     Active Substance: LOMITAPIDE MESYLATE
     Indication: Type IIa hyperlipidaemia
     Dosage: 10 MILLIGRAM, HS
     Route: 048
     Dates: start: 202503, end: 20250623
  2. IBUPROFEN [Concomitant]
     Active Substance: IBUPROFEN
     Indication: Product used for unknown indication
  3. METHOCARBAMOL [Concomitant]
     Active Substance: METHOCARBAMOL
     Indication: Product used for unknown indication
  4. ASPIRIN [Concomitant]
     Active Substance: ASPIRIN
     Indication: Product used for unknown indication
  5. VITAMIN B12 [Concomitant]
     Active Substance: CYANOCOBALAMIN
     Indication: Product used for unknown indication
  6. MELOXICAM [Concomitant]
     Active Substance: MELOXICAM
     Indication: Product used for unknown indication
  7. LEQVIO [Concomitant]
     Active Substance: INCLISIRAN SODIUM
     Indication: Product used for unknown indication

REACTIONS (13)
  - Vitreous floaters [Unknown]
  - Product dose omission in error [Unknown]
  - Nausea [Unknown]
  - Hepatic steatosis [Unknown]
  - Hepatic enzyme increased [Recovering/Resolving]
  - Weight increased [Unknown]
  - Flank pain [Unknown]
  - Sluggishness [Recovered/Resolved]
  - Rash [Recovered/Resolved]
  - Back pain [Unknown]
  - Fatigue [Recovered/Resolved]
  - Weight decreased [Unknown]
  - Drug ineffective [Unknown]

NARRATIVE: CASE EVENT DATE: 20250101
